FAERS Safety Report 17360433 (Version 1)
Quarter: 2020Q1

REPORT INFORMATION
  Report Type: Report from Study
  Country: PE (occurrence: PE)
  Receive Date: 20200203
  Receipt Date: 20200203
  Transmission Date: 20200409
  Serious: Yes (Death)
  Sender: FDA-Public Use
  Company Number: NVSC2020PE026605

PATIENT
  Age: 86 Year
  Sex: Female

DRUGS (2)
  1. REVOLADE [Suspect]
     Active Substance: ELTROMBOPAG
     Dosage: 150 MG (50 MG X3), QD
     Route: 065
     Dates: start: 20191125
  2. REVOLADE [Suspect]
     Active Substance: ELTROMBOPAG
     Indication: BONE MARROW FAILURE
     Dosage: 150 MG, QD
     Route: 065
     Dates: start: 20190325

REACTIONS (1)
  - Death [Fatal]

NARRATIVE: CASE EVENT DATE: 202001
